FAERS Safety Report 4541891-3 (Version None)
Quarter: 2004Q4

REPORT INFORMATION
  Report Type: 
  Country: None (occurrence: None)
  Receive Date: 20041230
  Receipt Date: 20041104
  Transmission Date: 20050328
  Serious: Yes (Hospitalization)
  Sender: FDA-Public Use
  Company Number: PHBS2004JP14987

PATIENT
  Age: 74 Year
  Sex: Female

DRUGS (4)
  1. IODINE [Concomitant]
  2. METOPROLOL TARTRATE [Suspect]
     Route: 065
  3. THIAMAZOLE [Suspect]
     Route: 065
  4. MEXILETINE [Suspect]
     Route: 065

REACTIONS (9)
  - ASPARTATE AMINOTRANSFERASE INCREASED [None]
  - BLOOD ALKALINE PHOSPHATASE INCREASED [None]
  - BLOOD BILIRUBIN INCREASED [None]
  - CHOLESTASIS [None]
  - HYPERTHERMIA [None]
  - JAUNDICE [None]
  - LIVER DISORDER [None]
  - PYREXIA [None]
  - VOMITING [None]
